FAERS Safety Report 8947049 (Version 1)
Quarter: 2012Q4

REPORT INFORMATION
  Report Type: 
  Country: US (occurrence: US)
  Receive Date: 20121205
  Receipt Date: 20121205
  Transmission Date: 20130627
  Serious: No
  Sender: FDA-Public Use
  Company Number: US-BAYER-2012-127661

PATIENT
  Sex: Male

DRUGS (3)
  1. MAGNEVIST [Suspect]
     Indication: NUCLEAR MAGNETIC RESONANCE IMAGING BRAIN
     Dosage: 20 ml, UNK
     Route: 042
     Dates: start: 20121204, end: 20121204
  2. MAGNEVIST [Suspect]
     Indication: HYPOTHYROIDISM
  3. MAGNEVIST [Suspect]
     Indication: ADRENAL INSUFFICIENCY

REACTIONS (4)
  - Sneezing [None]
  - Nausea [None]
  - Pruritus [None]
  - Nasal congestion [None]
